FAERS Safety Report 19701956 (Version 1)
Quarter: 2021Q3

REPORT INFORMATION
  Report Type: Report from Study
  Country: US (occurrence: US)
  Receive Date: 20210814
  Receipt Date: 20210814
  Transmission Date: 20211014
  Serious: Yes (Life-Threatening, Hospitalization, Other)
  Sender: FDA-Public Use
  Company Number: PHHY2018US023837

PATIENT
  Age: 4 Year
  Sex: Male
  Weight: 14.5 kg

DRUGS (9)
  1. OXYCODONE [Concomitant]
     Active Substance: OXYCODONE
     Indication: PAIN
     Dosage: 1.5 MG/ML, Q6H (PRN)
     Route: 048
  2. MIRALAX [Concomitant]
     Active Substance: POLYETHYLENE GLYCOL 3350
     Indication: CONSTIPATION
     Dosage: 8 G, QD (PRN)
     Route: 048
  3. BENADRYL [Concomitant]
     Active Substance: DIPHENHYDRAMINE HYDROCHLORIDE
     Indication: COUGH
     Dosage: UNK
     Route: 065
  4. POLY?VI?SOL [Concomitant]
     Active Substance: VITAMINS
     Indication: PRODUCT USED FOR UNKNOWN INDICATION
     Dosage: 1 ML, QD
     Route: 048
  5. DESMOPRESSIN [Concomitant]
     Active Substance: DESMOPRESSIN
     Indication: PRODUCT USED FOR UNKNOWN INDICATION
     Dosage: 0.125 DF, QD
     Route: 048
  6. LEVOTHYROXINE. [Concomitant]
     Active Substance: LEVOTHYROXINE
     Indication: PRODUCT USED FOR UNKNOWN INDICATION
     Dosage: 1 DF, QD
     Route: 048
  7. SENNA [Concomitant]
     Active Substance: SENNA LEAF\SENNOSIDES\SENNOSIDES A AND B
     Indication: CONSTIPATION
     Dosage: 0.5 DF, QD (PRN)
     Route: 048
  8. GSK1120212 [Suspect]
     Active Substance: TRAMETINIB
     Indication: ASTROCYTOMA
     Dosage: 0.4 MG, QD
     Route: 048
     Dates: start: 20170907, end: 20180203
  9. HYDROCORTISONE. [Concomitant]
     Active Substance: HYDROCORTISONE
     Indication: PRODUCT USED FOR UNKNOWN INDICATION
     Dosage: 0.5 DF, BID
     Route: 048

REACTIONS (27)
  - Seizure [Unknown]
  - Hypotension [Unknown]
  - Cardiac failure [Recovering/Resolving]
  - Arrhythmia [Recovering/Resolving]
  - Hypothermia [Recovered/Resolved]
  - Ventricular arrhythmia [Unknown]
  - Fatigue [Unknown]
  - Malaise [Unknown]
  - Ejection fraction decreased [Unknown]
  - Ventricular tachycardia [Unknown]
  - Tremor [Unknown]
  - Atelectasis [Unknown]
  - Hypernatraemia [Recovered/Resolved]
  - Respiratory syncytial virus infection [Unknown]
  - Pyrexia [Unknown]
  - Respiratory failure [Recovering/Resolving]
  - Ventricular extrasystoles [Unknown]
  - Nausea [Unknown]
  - Hypoglycaemia [Recovered/Resolved]
  - Bradycardia [Unknown]
  - Wheezing [Unknown]
  - Crepitations [Unknown]
  - Infection [Unknown]
  - Decreased appetite [Unknown]
  - Gait disturbance [Unknown]
  - Oedema [Unknown]
  - Cough [Unknown]

NARRATIVE: CASE EVENT DATE: 20180202
